FAERS Safety Report 5517426-5 (Version None)
Quarter: 2007Q4

REPORT INFORMATION
  Report Type: 
  Country: None (occurrence: None)
  Receive Date: 20071108
  Receipt Date: 20070703
  Transmission Date: 20080405
  Serious: Yes (Hospitalization, Other)
  Sender: FDA-Public Use
  Company Number: 2007S1000275

PATIENT
  Age: 74 Year
  Sex: Male

DRUGS (4)
  1. CUBICIN [Suspect]
     Indication: BACTERAEMIA
     Dosage: IV
     Route: 042
     Dates: start: 20070620, end: 20070629
  2. CUBICIN [Suspect]
     Indication: CATHETER SEPSIS
     Dosage: IV
     Route: 042
     Dates: start: 20070620, end: 20070629
  3. FLUCONAZOLE [Concomitant]
  4. VANCOMYCIN [Concomitant]

REACTIONS (2)
  - CANDIDIASIS [None]
  - STAPHYLOCOCCAL BACTERAEMIA [None]
